FAERS Safety Report 9670492 (Version 2)
Quarter: 2013Q4

REPORT INFORMATION
  Report Type: Spontaneous
  Country: US (occurrence: US)
  Receive Date: 20131106
  Receipt Date: 20131217
  Transmission Date: 20140711
  Serious: Yes (Other)
  Sender: FDA-Public Use
  Company Number: US-AMGEN-USASP2013077120

PATIENT
  Age: 76 Year
  Sex: Male
  Weight: 81.63 kg

DRUGS (3)
  1. PROLIA [Suspect]
     Indication: OSTEOPOROSIS
     Dosage: ONCE
     Route: 058
     Dates: start: 20130515
  2. TRAMADOL [Concomitant]
     Indication: PAIN
     Route: 048
  3. SPIRIVA [Concomitant]
     Indication: CHRONIC OBSTRUCTIVE PULMONARY DISEASE
     Route: 045

REACTIONS (1)
  - Paralysis [Recovered/Resolved]
